FAERS Safety Report 9472991 (Version 1)
Quarter: 2013Q3

REPORT INFORMATION
  Report Type: Spontaneous
  Country: US (occurrence: US)
  Receive Date: 20130823
  Receipt Date: 20130823
  Transmission Date: 20140515
  Serious: No
  Sender: FDA-Public Use
  Company Number: US-BRISTOL-MYERS SQUIBB COMPANY-17315862

PATIENT
  Age: 54 Year
  Sex: Female
  Weight: 105.67 kg

DRUGS (24)
  1. SPRYCEL [Suspect]
     Indication: CHRONIC MYELOID LEUKAEMIA
     Route: 048
     Dates: end: 20130102
  2. ALLOPURINOL [Concomitant]
  3. BUMETANIDE [Concomitant]
  4. CEFDINIR [Concomitant]
  5. COUMADIN [Concomitant]
  6. CRESTOR [Concomitant]
  7. CYMBALTA [Concomitant]
  8. DOXEPINE [Concomitant]
  9. ESTRADIOL [Concomitant]
  10. HYDROCODONE [Concomitant]
  11. LISINOPRIL [Concomitant]
  12. METOPROLOL [Concomitant]
  13. NITROGLYCERIN [Concomitant]
  14. NYQUIL [Concomitant]
     Dosage: NYQUIL COUGH LIQUID,
  15. PACERONE [Concomitant]
  16. PHENERGAN [Concomitant]
  17. POTASSIUM [Concomitant]
  18. PROAIR HFA [Concomitant]
  19. SPIRIVA [Concomitant]
  20. SPIRONOLACTONE [Concomitant]
  21. SYNTHROID [Concomitant]
  22. VITAMIN D [Concomitant]
  23. XANAX [Concomitant]
  24. ZANAFLEX [Concomitant]

REACTIONS (3)
  - Chest pain [Recovered/Resolved]
  - Hypoaesthesia [Recovered/Resolved]
  - Nausea [Recovered/Resolved]
